FAERS Safety Report 11524212 (Version 1)
Quarter: 2015Q3

REPORT INFORMATION
  Report Type: Spontaneous
  Country: US (occurrence: US)
  Receive Date: 20150903
  Receipt Date: 20150903
  Transmission Date: 20151125
  Serious: No
  Sender: FDA-Public Use
  Company Number: US-ELI_LILLY_AND_COMPANY-US201305005648

PATIENT
  Age: 46 Year

DRUGS (4)
  1. ZOLOFT [Concomitant]
     Active Substance: SERTRALINE HYDROCHLORIDE
     Dosage: 100 MG, UNKNOWN (FOR YEARS)
     Route: 065
  2. AMBIEN [Concomitant]
     Active Substance: ZOLPIDEM TARTRATE
     Indication: SLEEP DISORDER
     Dosage: 12.5 MG, UNKNOWN
     Route: 065
  3. CYMBALTA [Suspect]
     Active Substance: DULOXETINE HYDROCHLORIDE
     Dosage: 60 MG (FOR 2 WEEKS), UNKNOWN
     Route: 065
     Dates: start: 20130503
  4. CYMBALTA [Suspect]
     Active Substance: DULOXETINE HYDROCHLORIDE
     Dosage: 30 MG (FOR 2 WEEKS), UNKNOWN
     Route: 065
     Dates: start: 20130419

REACTIONS (3)
  - Peripheral swelling [Unknown]
  - Arthralgia [Unknown]
  - Joint swelling [Unknown]
